FAERS Safety Report 7122630-9 (Version None)
Quarter: 2010Q4

REPORT INFORMATION
  Report Type: 
  Country: None (occurrence: None)
  Receive Date: 20101124
  Receipt Date: 20101117
  Transmission Date: 20110411
  Serious: Yes (Hospitalization)
  Sender: FDA-Public Use
  Company Number: US-JNJFOC-20101106260

PATIENT
  Sex: Female

DRUGS (4)
  1. SIMPONI [Suspect]
     Indication: RHEUMATOID ARTHRITIS
     Route: 058
  2. METHOTREXATE [Concomitant]
     Indication: RHEUMATOID ARTHRITIS
  3. PREDNISONE [Concomitant]
     Indication: RHEUMATOID ARTHRITIS
  4. TYLENOL (CAPLET) [Concomitant]

REACTIONS (4)
  - GASTROINTESTINAL INFLAMMATION [None]
  - INTESTINAL MASS [None]
  - INTESTINAL PERFORATION [None]
  - SMALL INTESTINAL HAEMORRHAGE [None]
